FAERS Safety Report 25704387 (Version 1)
Quarter: 2025Q3

REPORT INFORMATION
  Report Type: Spontaneous
  Country: GB (occurrence: GB)
  Receive Date: 20250820
  Receipt Date: 20250820
  Transmission Date: 20251021
  Serious: Yes (Other)
  Sender: TEVA
  Company Number: None

PATIENT
  Sex: Female

DRUGS (2)
  1. MIRTAZAPINE [Suspect]
     Active Substance: MIRTAZAPINE
     Indication: Product used for unknown indication
     Route: 065
     Dates: start: 20250715
  2. VORTIOXETINE [Concomitant]
     Active Substance: VORTIOXETINE
     Indication: Product used for unknown indication
     Dates: start: 202503

REACTIONS (3)
  - Oedema peripheral [Not Recovered/Not Resolved]
  - Chromaturia [Not Recovered/Not Resolved]
  - Urinary retention [Recovering/Resolving]

NARRATIVE: CASE EVENT DATE: 20250701
